FAERS Safety Report 10449267 (Version 1)
Quarter: 2014Q3

REPORT INFORMATION
  Report Type: Spontaneous
  Country: US (occurrence: None)
  Receive Date: 20140911
  Receipt Date: 20140911
  Transmission Date: 20150326
  Serious: Yes (Other)
  Sender: FDA-Public Use
  Company Number: None

PATIENT
  Age: 62 Year
  Sex: Female
  Weight: 53.52 kg

DRUGS (1)
  1. LEVOTHYROXINE [Suspect]
     Active Substance: LEVOTHYROXINE
     Indication: HYPOTHYROIDISM
     Route: 048
     Dates: start: 20120206, end: 20140806

REACTIONS (7)
  - Fatigue [None]
  - Alopecia [None]
  - Dry skin [None]
  - Constipation [None]
  - Product substitution issue [None]
  - Product quality issue [None]
  - Blood parathyroid hormone abnormal [None]

NARRATIVE: CASE EVENT DATE: 20140806
